FAERS Safety Report 8866272 (Version 1)
Quarter: 2012Q4

REPORT INFORMATION
  Report Type: 
  Country: JP (occurrence: JP)
  Receive Date: 20121025
  Receipt Date: 20121025
  Transmission Date: 20130627
  Serious: Yes (Death, Hospitalization)
  Sender: FDA-Public Use
  Company Number: JP-ROXANE LABORATORIES, INC.-2012-RO-02062RO

PATIENT
  Age: 77 Year
  Sex: Male
  Weight: 42 kg

DRUGS (2)
  1. METHOTREXATE [Suspect]
     Indication: RHEUMATOID ARTHRITIS
  2. TACROLIMUS [Suspect]
     Indication: RHEUMATOID ARTHRITIS
     Dosage: 1 mg
     Dates: start: 201004

REACTIONS (3)
  - Death [Fatal]
  - Burkitt^s lymphoma [Unknown]
  - Dyspnoea [Unknown]
